FAERS Safety Report 4560284-6 (Version None)
Quarter: 2005Q1

REPORT INFORMATION
  Report Type: 
  Country: None (occurrence: None)
  Receive Date: 20050120
  Receipt Date: 20050120
  Transmission Date: 20050727
  Serious: No
  Sender: FDA-Public Use
  Company Number: None

PATIENT
  Sex: Male
  Weight: 25.9 kg

DRUGS (6)
  1. INDERAL LA [Suspect]
     Indication: AFFECTIVE DISORDER
     Dosage: 80 MG - 1 TAB AM
  2. INDERAL LA [Suspect]
     Indication: ATTENTION DEFICIT/HYPERACTIVITY DISORDER
     Dosage: 80 MG - 1 TAB AM
  3. INDERAL LA [Suspect]
     Indication: DEVELOPMENTAL COORDINATION DISORDER
     Dosage: 80 MG - 1 TAB AM
  4. INDERAL LA [Suspect]
     Indication: INSOMNIA
     Dosage: 80 MG - 1 TAB AM
  5. INDERAL LA [Suspect]
     Indication: OPPOSITIONAL DEFIANT DISORDER
     Dosage: 80 MG - 1 TAB AM
  6. INDERAL LA [Suspect]
     Indication: PHONOLOGICAL DISORDER
     Dosage: 80 MG - 1 TAB AM

REACTIONS (1)
  - PHARMACEUTICAL PRODUCT COMPLAINT [None]
